FAERS Safety Report 4833449-3 (Version None)
Quarter: 2005Q4

REPORT INFORMATION
  Report Type: 
  Country: None (occurrence: None)
  Receive Date: 20051117
  Receipt Date: 20051107
  Transmission Date: 20060501
  Serious: Yes (Other)
  Sender: FDA-Public Use
  Company Number: AU_051009019

PATIENT
  Age: 74 Year
  Sex: Male

DRUGS (1)
  1. XIGRIS [Suspect]
     Dates: start: 20050905

REACTIONS (2)
  - HAEMORRHAGE [None]
  - TOXIC SHOCK SYNDROME [None]
